FAERS Safety Report 4581264-0 (Version None)
Quarter: 2005Q1

REPORT INFORMATION
  Report Type: 
  Country: None (occurrence: None)
  Receive Date: 20050214
  Receipt Date: 20040916
  Transmission Date: 20050727
  Serious: No
  Sender: FDA-Public Use
  Company Number: US-GLAXOSMITHKLINE-A0526005A

PATIENT
  Age: 68 Year
  Sex: Female

DRUGS (3)
  1. LAMICTAL [Suspect]
     Indication: MIGRAINE PROPHYLAXIS
     Dosage: 75MG TWICE PER DAY
     Route: 048
     Dates: start: 20040824, end: 20040910
  2. ARMOUR [Concomitant]
  3. MAXALT [Concomitant]

REACTIONS (11)
  - COORDINATION ABNORMAL [None]
  - DIZZINESS [None]
  - EYE PRURITUS [None]
  - GENITAL PRURITUS FEMALE [None]
  - HEADACHE [None]
  - INSOMNIA [None]
  - PRURITUS ANI [None]
  - SOMNOLENCE [None]
  - STOMATITIS [None]
  - SWELLING FACE [None]
  - URTICARIA [None]
